FAERS Safety Report 9367094 (Version 2)
Quarter: 2013Q4

REPORT INFORMATION
  Report Type: Spontaneous
  Country: US (occurrence: US)
  Receive Date: 20130625
  Receipt Date: 20131017
  Transmission Date: 20140711
  Serious: No
  Sender: FDA-Public Use
  Company Number: US-009507513-1306USA012194

PATIENT
  Sex: Female
  Weight: 68.27 kg

DRUGS (7)
  1. CLARITIN LIQUIGELS [Suspect]
     Indication: HYPERSENSITIVITY
     Dosage: 10 MG, ONCE
     Route: 048
     Dates: start: 2013
  2. AZITHROMYCIN [Concomitant]
     Indication: INFECTION
     Dosage: UNK, UNKNOWN
  3. ACHROMYCIN [Concomitant]
     Indication: INFECTION
     Dosage: UNK, UNKNOWN
  4. BECONASE [Concomitant]
     Indication: HYPERSENSITIVITY
     Dosage: UNK, UNKNOWN
  5. ESTRADIOL [Concomitant]
     Indication: MENOPAUSE
     Dosage: UNK, UNKNOWN
  6. ZYRTEC [Concomitant]
     Indication: HYPERSENSITIVITY
     Dosage: UNK, UNKNOWN
  7. CHLOR-TRIMETON [Concomitant]
     Indication: HYPERSENSITIVITY
     Dosage: UNK, UNKNOWN

REACTIONS (1)
  - Drug ineffective [Unknown]
